FAERS Safety Report 5088692-8 (Version None)
Quarter: 2006Q3

REPORT INFORMATION
  Report Type: 
  Country: None (occurrence: None)
  Receive Date: 20060822
  Receipt Date: 20060809
  Transmission Date: 20061208
  Serious: Yes (Hospitalization)
  Sender: FDA-Public Use
  Company Number: 2006US001770

PATIENT
  Sex: Female

DRUGS (5)
  1. PROGRAF [Suspect]
     Indication: PROPHYLAXIS AGAINST TRANSPLANT REJECTION
     Dosage: 8 MG, BID, ORAL
     Route: 048
  2. BYETTA [Suspect]
  3. MYFORTIC (MYCOPHENOLATE  SODIUM) [Concomitant]
  4. PREDNISONE TAB [Concomitant]
  5. INSULIN (INSULIN HUMAN) [Concomitant]

REACTIONS (2)
  - DRUG INTERACTION [None]
  - KIDNEY TRANSPLANT REJECTION [None]
